FAERS Safety Report 5449148-3 (Version None)
Quarter: 2007Q3

REPORT INFORMATION
  Report Type: 
  Country: None (occurrence: None)
  Receive Date: 20070911
  Receipt Date: 20070905
  Transmission Date: 20080115
  Serious: Yes (Hospitalization)
  Sender: FDA-Public Use
  Company Number: GB-ROXANE LABORATORIES, INC-2007-BP-20646RO

PATIENT
  Age: 27 Year
  Sex: Male
  Weight: 75 kg

DRUGS (6)
  1. MIDAZOLAM HCL [Suspect]
     Indication: INDUCTION OF ANAESTHESIA
     Route: 042
  2. FENTANYL [Suspect]
     Indication: INDUCTION OF ANAESTHESIA
     Route: 042
  3. PROPOFOL [Suspect]
     Indication: INDUCTION OF ANAESTHESIA
  4. ISOFLURANE [Suspect]
     Indication: ANAESTHESIA
     Route: 055
  5. NITROUS OXIDE [Suspect]
     Indication: ANAESTHESIA
     Route: 055
  6. LIDOCAINE [Concomitant]
     Indication: LOCAL ANAESTHESIA

REACTIONS (10)
  - APHASIA [None]
  - APNOEA [None]
  - CHILLS [None]
  - HEADACHE [None]
  - HEMIPARESIS [None]
  - HYPERVENTILATION [None]
  - LOSS OF CONSCIOUSNESS [None]
  - MIGRAINE WITH AURA [None]
  - NAUSEA [None]
  - NECK PAIN [None]
